FAERS Safety Report 8790853 (Version 2)
Quarter: 2012Q4

REPORT INFORMATION
  Report Type: Spontaneous
  Country: US (occurrence: None)
  Receive Date: 20120906
  Receipt Date: 20121004
  Transmission Date: 20130627
  Serious: No
  Sender: FDA-Public Use
  Company Number: 2012P1055488

PATIENT
  Age: 57 Year
  Sex: Male
  Weight: 95.26 kg

DRUGS (10)
  1. FENTANYL [Suspect]
     Indication: NECK PAIN
     Route: 062
     Dates: start: 20120817, end: 20120829
  2. FENTANYL [Suspect]
     Indication: BACK PAIN
     Route: 062
     Dates: start: 20120817, end: 20120829
  3. OXYCODONE [Concomitant]
     Indication: BACK PAIN
  4. OXYCODONE [Concomitant]
     Indication: NECK PAIN
  5. MORPHINE [Concomitant]
  6. SPIRONOLACTONE [Concomitant]
  7. FUROSEMIDE [Concomitant]
  8. FOLIC ACID [Concomitant]
  9. NADOLOL [Concomitant]
  10. VITAMINS (UNSPECIFIED) [Concomitant]

REACTIONS (5)
  - Fall [None]
  - Chest injury [None]
  - Cough [None]
  - Painful respiration [None]
  - Skeletal injury [None]
